FAERS Safety Report 22380963 (Version 4)
Quarter: 2023Q4

REPORT INFORMATION
  Report Type: Spontaneous
  Country: US (occurrence: US)
  Receive Date: 20230530
  Receipt Date: 20231109
  Transmission Date: 20240110
  Serious: No
  Sender: FDA-Public Use
  Company Number: US-BRISTOL-MYERS SQUIBB COMPANY-2023-075429

PATIENT
  Age: 80 Year
  Sex: Male

DRUGS (4)
  1. LENALIDOMIDE [Suspect]
     Active Substance: LENALIDOMIDE
     Indication: Plasma cell myeloma
     Route: 048
     Dates: start: 20230516
  2. LENALIDOMIDE [Suspect]
     Active Substance: LENALIDOMIDE
     Route: 048
  3. CALCIUM [Concomitant]
     Active Substance: CALCIUM
     Indication: Product used for unknown indication
  4. CHOLECALCIFEROL [Concomitant]
     Active Substance: CHOLECALCIFEROL
     Indication: Product used for unknown indication

REACTIONS (9)
  - Constipation [Not Recovered/Not Resolved]
  - Swelling [Recovering/Resolving]
  - Muscle spasms [Unknown]
  - Hyperkeratosis [Unknown]
  - Pain [Unknown]
  - Dyspnoea [Unknown]
  - Somnolence [Unknown]
  - Sleep deficit [Unknown]
  - Blood calcium decreased [Unknown]
